FAERS Safety Report 7537384-1 (Version None)
Quarter: 2011Q2

REPORT INFORMATION
  Report Type: 
  Country: None (occurrence: None)
  Receive Date: 20110609
  Receipt Date: 20110527
  Transmission Date: 20111010
  Serious: Yes (Other)
  Sender: FDA-Public Use
  Company Number: US-CELGENEUS-163-21660-11060230

PATIENT

DRUGS (1)
  1. ABRAXANE [Suspect]
     Route: 051

REACTIONS (1)
  - HEPATIC CIRRHOSIS [None]
